FAERS Safety Report 9217308 (Version 1)
Quarter: 2013Q2

REPORT INFORMATION
  Report Type: Spontaneous
  Country: US (occurrence: None)
  Receive Date: 20130404
  Receipt Date: 20130404
  Transmission Date: 20140414
  Serious: Yes (Other)
  Sender: FDA-Public Use
  Company Number: 001503462A

PATIENT
  Age: 17 Year
  Sex: Male

DRUGS (3)
  1. PROACTIV SOLUTION RENEWING CLEANSER [Suspect]
     Indication: ACNE
     Dosage: ONCE DAILY DERMAL
     Dates: start: 20120608, end: 20120628
  2. PROACTIV SOLUTION DAILY PROTECTION PLUS SUNSCREEN SPF 30 [Suspect]
     Indication: ACNE
     Dosage: ONE DAILY DERMAL
     Dates: start: 20120608, end: 20120628
  3. ANTI-INFLAMMATORY MEDICATION [Concomitant]

REACTIONS (5)
  - Dry skin [None]
  - Swelling face [None]
  - Local swelling [None]
  - Rash [None]
  - Hypersensitivity [None]
